FAERS Safety Report 5186693-2 (Version None)
Quarter: 2006Q4

REPORT INFORMATION
  Report Type: 
  Country: None (occurrence: None)
  Receive Date: 20061213
  Receipt Date: 20061127
  Transmission Date: 20070319
  Serious: Yes (Death, Hospitalization)
  Sender: FDA-Public Use
  Company Number: 2006001898

PATIENT
  Age: 69 Year
  Sex: Male

DRUGS (1)
  1. ERLOTINIB (TABLET) [Suspect]
     Indication: PROSTATE CANCER
     Dosage: 150  MG QD, ORAL
     Route: 048
     Dates: start: 20060724, end: 20060906

REACTIONS (24)
  - ABASIA [None]
  - COUGH [None]
  - DEHYDRATION [None]
  - DELUSION [None]
  - DIFFICULT TO WEAN FROM VENTILATOR [None]
  - DISEASE PROGRESSION [None]
  - DIZZINESS [None]
  - DYSKINESIA [None]
  - DYSSTASIA [None]
  - FALL [None]
  - GENERAL PHYSICAL HEALTH DETERIORATION [None]
  - HYPOTENSION [None]
  - HYPOXIA [None]
  - METASTASES TO ADRENALS [None]
  - METASTASES TO BONE MARROW [None]
  - METASTASES TO CENTRAL NERVOUS SYSTEM [None]
  - METASTASES TO LIVER [None]
  - METASTASES TO LUNG [None]
  - METASTASES TO LYMPH NODES [None]
  - OBSTRUCTION [None]
  - PNEUMONIA [None]
  - PROSTATE CANCER METASTATIC [None]
  - RENAL FAILURE [None]
  - TREMOR [None]
